FAERS Safety Report 14425710 (Version 1)
Quarter: 2018Q1

REPORT INFORMATION
  Report Type: Report from Study
  Country: US (occurrence: US)
  Receive Date: 20180123
  Receipt Date: 20180123
  Transmission Date: 20180509
  Serious: Yes (Death)
  Sender: FDA-Public Use
  Company Number: US-BAUSCH-BL-2018-001945

PATIENT
  Sex: Female

DRUGS (1)
  1. UCERIS [Suspect]
     Active Substance: BUDESONIDE
     Indication: CROHN^S DISEASE
     Route: 048

REACTIONS (2)
  - Death [Fatal]
  - Off label use [Unknown]
